FAERS Safety Report 20224002 (Version 1)
Quarter: 2021Q4

REPORT INFORMATION
  Report Type: Spontaneous
  Country: GR (occurrence: GR)
  Receive Date: 20211223
  Receipt Date: 20211223
  Transmission Date: 20220303
  Serious: Yes (Other)
  Sender: FDA-Public Use
  Company Number: GR-TEVA-2021-GR-1989559

PATIENT
  Sex: Female

DRUGS (8)
  1. CISPLATIN [Suspect]
     Active Substance: CISPLATIN
     Indication: Ovarian cancer metastatic
     Dosage: THE CLOSED ABDOMEN TECHNIQUE HIPEC IN THE ABDOMINAL CAVITY HEATED TO 40 DEG C FOR 90 MIN
     Route: 033
  2. CISPLATIN [Suspect]
     Active Substance: CISPLATIN
     Indication: Metastases to peritoneum
  3. PACLITAXEL [Suspect]
     Active Substance: PACLITAXEL
     Indication: Ovarian cancer metastatic
     Dosage: THE CLOSED ABDOMEN TECHNIQUE HIPEC IN THE ABDOMINAL CAVITY HEATED TO 40 DEG C FOR 90 MIN
     Route: 033
  4. PACLITAXEL [Suspect]
     Active Substance: PACLITAXEL
     Indication: Metastases to peritoneum
  5. CARBOPLATIN [Suspect]
     Active Substance: CARBOPLATIN
     Indication: Ovarian cancer metastatic
     Dosage: THE CLOSED ABDOMEN TECHNIQUE HIPEC IN THE ABDOMINAL CAVITY HEATED TO 40 DEG C FOR 90 MIN
     Route: 033
  6. CARBOPLATIN [Suspect]
     Active Substance: CARBOPLATIN
     Indication: Metastases to peritoneum
  7. BEVACIZUMAB [Suspect]
     Active Substance: BEVACIZUMAB
     Indication: Ovarian cancer metastatic
     Dosage: THE CLOSED ABDOMEN TECHNIQUE HIPEC IN THE ABDOMINAL CAVITY HEATED TO 40 DEG C FOR 90 MIN
     Route: 033
  8. BEVACIZUMAB [Suspect]
     Active Substance: BEVACIZUMAB
     Indication: Metastases to peritoneum

REACTIONS (1)
  - Acute kidney injury [Unknown]
